FAERS Safety Report 11577829 (Version 5)
Quarter: 2016Q1

REPORT INFORMATION
  Report Type: Spontaneous
  Country: GB (occurrence: GB)
  Receive Date: 20150930
  Receipt Date: 20160322
  Transmission Date: 20160525
  Serious: Yes (Death, Hospitalization)
  Sender: FDA-Public Use
  Company Number: GB-JNJFOC-20150925817

PATIENT
  Age: 52 Year
  Sex: Male
  Weight: 82 kg

DRUGS (5)
  1. REMICADE [Suspect]
     Active Substance: INFLIXIMAB
     Indication: COLITIS ULCERATIVE
     Dosage: BIMONTHLY AFTER INITIAL 0 AND 2 WEEKS
     Route: 042
     Dates: start: 20110408, end: 20120430
  2. AZATHIOPRINE. [Concomitant]
     Active Substance: AZATHIOPRINE
     Indication: COLITIS ULCERATIVE
     Dosage: USED INTERMITTENTLY THORUGHOUT TREATMENT WITH INFLIXIMAB
     Route: 065
  3. REMICADE [Suspect]
     Active Substance: INFLIXIMAB
     Indication: CROHN^S DISEASE
     Dosage: BIMONTHLY AFTER INITIAL 0 AND 2 WEEKS
     Route: 042
     Dates: start: 20110408, end: 20120430
  4. AZATHIOPRINE. [Concomitant]
     Active Substance: AZATHIOPRINE
     Indication: CROHN^S DISEASE
     Dosage: USED INTERMITTENTLY THORUGHOUT TREATMENT WITH INFLIXIMAB
     Route: 065
  5. PREDNISOLONE. [Concomitant]
     Active Substance: PREDNISOLONE
     Indication: COLITIS ULCERATIVE
     Dosage: INTERMITTENT TAPERING DOSES, USED INTERMITTENTLY THROUGH OUT TREATMENT WITH INFLIXIMAB
     Route: 065

REACTIONS (3)
  - Tuberculosis [Fatal]
  - Pneumonia [Not Recovered/Not Resolved]
  - Neutropenic sepsis [Not Recovered/Not Resolved]

NARRATIVE: CASE EVENT DATE: 20120506
